FAERS Safety Report 19047413 (Version 1)
Quarter: 2021Q1

REPORT INFORMATION
  Report Type: Report from Study
  Country: GE (occurrence: GE)
  Receive Date: 20210323
  Receipt Date: 20210323
  Transmission Date: 20210420
  Serious: Yes (Death)
  Sender: FDA-Public Use
  Company Number: GE-BAYER-2021-109682

PATIENT

DRUGS (2)
  1. CLOFAZIMINE [Suspect]
     Active Substance: CLOFAZIMINE
     Dosage: UNK
  2. MOXIFLOXACIN. [Suspect]
     Active Substance: MOXIFLOXACIN
     Indication: TUBERCULOSIS
     Dosage: UNK

REACTIONS (7)
  - Off label use [None]
  - Electrocardiogram QT prolonged [Fatal]
  - Renal injury [Fatal]
  - Blood creatinine increased [None]
  - Product use in unapproved indication [None]
  - Blood potassium decreased [None]
  - Renal failure [Fatal]
